FAERS Safety Report 5193774-6 (Version None)
Quarter: 2006Q4

REPORT INFORMATION
  Report Type: 
  Country: None (occurrence: None)
  Receive Date: 20061228
  Receipt Date: 20061117
  Transmission Date: 20070319
  Serious: Yes (Hospitalization)
  Sender: FDA-Public Use
  Company Number: DE-GLAXOSMITHKLINE-D0051877A

PATIENT
  Age: 70 Year
  Sex: Female

DRUGS (1)
  1. QUILONUM RETARD [Suspect]
     Dosage: 450MG TWICE PER DAY
     Route: 048

REACTIONS (5)
  - APHASIA [None]
  - DISORIENTATION [None]
  - DIZZINESS [None]
  - THERAPEUTIC AGENT TOXICITY [None]
  - TREMOR [None]
